FAERS Safety Report 7413394-X (Version None)
Quarter: 2011Q2

REPORT INFORMATION
  Report Type: 
  Country: None (occurrence: None)
  Receive Date: 20110405
  Receipt Date: 20110321
  Transmission Date: 20111010
  Serious: Yes (Disabling, Other)
  Sender: FDA-Public Use
  Company Number: 2011MA002721

PATIENT
  Sex: Male

DRUGS (1)
  1. METOCLOPRAMIDE [Suspect]
     Dosage: PO
     Route: 048
     Dates: start: 20000301, end: 20090501

REACTIONS (10)
  - ANXIETY [None]
  - ECONOMIC PROBLEM [None]
  - PARTNER STRESS [None]
  - ASTHENIA [None]
  - TREMOR [None]
  - INJURY [None]
  - EMOTIONAL DISORDER [None]
  - DYSKINESIA [None]
  - ACTIVITIES OF DAILY LIVING IMPAIRED [None]
  - TARDIVE DYSKINESIA [None]
